FAERS Safety Report 9237911 (Version 1)
Quarter: 2013Q2

REPORT INFORMATION
  Report Type: Spontaneous
  Country: GB (occurrence: None)
  Receive Date: 20130415
  Receipt Date: 20130415
  Transmission Date: 20140414
  Serious: Yes (Life-Threatening, Hospitalization, Other)
  Sender: FDA-Public Use
  Company Number: 08-AUR-03071

PATIENT
  Age: 39 Year
  Sex: Male

DRUGS (7)
  1. METFORMIN (METFORMIN) [Suspect]
     Indication: PRODUCT USED FOR UNKNOWN INDICATION
     Dosage: 6500 (6500 MG, 1 IN 1
  2. METFORMIN (METFORMIN) [Suspect]
     Dosage: 6500 (6500 MG, 1 IN 1
  3. METFORMIN (METFORMIN) [Suspect]
     Dosage: 6500 (6500 MG, 1 IN 1
  4. METFORMIN (METFORMIN) [Suspect]
     Indication: PRODUCT USED FOR UNKNOWN INDICATION
     Dosage: 6500 (6500 MG, 1 IN 1
  5. ASPIRIN [Suspect]
     Indication: PRODUCT USED FOR UNKNOWN INDICATION
  6. AMLODIPINE (AMLODIPINE) [Suspect]
     Indication: PRODUCT USED FOR UNKNOWN INDICATION
  7. DOXAZOSINE [Suspect]
     Indication: PRODUCT USED FOR UNKNOWN INDICATION

REACTIONS (2)
  - Blood pressure decreased [None]
  - Overdose [None]
